FAERS Safety Report 25333346 (Version 1)
Quarter: 2025Q2

REPORT INFORMATION
  Report Type: Spontaneous
  Country: LT (occurrence: LT)
  Receive Date: 20250519
  Receipt Date: 20250519
  Transmission Date: 20250717
  Serious: Yes (Hospitalization, Other)
  Sender: VIIV
  Company Number: LT-VIIV HEALTHCARE-LT2025EME060131

PATIENT

DRUGS (2)
  1. DOLUTEGRAVIR [Suspect]
     Active Substance: DOLUTEGRAVIR
     Indication: HIV infection
     Dates: start: 202312
  2. LAMIVUDINE [Suspect]
     Active Substance: LAMIVUDINE
     Indication: HIV infection
     Dates: start: 202312

REACTIONS (1)
  - Cerebral infarction [Recovering/Resolving]
